FAERS Safety Report 8464657-0 (Version None)
Quarter: 2012Q2

REPORT INFORMATION
  Report Type: 
  Country: None (occurrence: None)
  Receive Date: 20120620
  Receipt Date: 20120620
  Transmission Date: 20120825
  Serious: Yes (Other)
  Sender: FDA-Public Use
  Company Number: None

PATIENT
  Age: 71 Year
  Sex: Male
  Weight: 96.1626 kg

DRUGS (1)
  1. NAFTIN [Suspect]
     Indication: NAIL CANDIDA
     Dosage: GEL APPLIED TO ALL TOES DAILY
     Route: 061
     Dates: start: 20120115, end: 20120515

REACTIONS (3)
  - ERECTILE DYSFUNCTION [None]
  - LIBIDO DECREASED [None]
  - ANORGASMIA [None]
